FAERS Safety Report 13271155 (Version 1)
Quarter: 2017Q1

REPORT INFORMATION
  Report Type: Spontaneous
  Country: US (occurrence: US)
  Receive Date: 20170226
  Receipt Date: 20170226
  Transmission Date: 20170428
  Serious: Yes (Other)
  Sender: FDA-Public Use
  Company Number: US-TEVA-741293USA

PATIENT
  Age: 35 Year
  Sex: Female

DRUGS (4)
  1. COPAXONE [Suspect]
     Active Substance: GLATIRAMER ACETATE
     Indication: MULTIPLE SCLEROSIS
     Route: 058
     Dates: start: 20161021, end: 201702
  2. NEURONTIN [Concomitant]
     Active Substance: GABAPENTIN
  3. IMETRIX [Concomitant]
  4. MAXALT [Concomitant]
     Active Substance: RIZATRIPTAN BENZOATE

REACTIONS (2)
  - Multiple sclerosis relapse [Unknown]
  - Drug ineffective [Unknown]

NARRATIVE: CASE EVENT DATE: 20170215
